FAERS Safety Report 7949952-3 (Version None)
Quarter: 2011Q4

REPORT INFORMATION
  Report Type: 
  Country: None (occurrence: None)
  Receive Date: 20111130
  Receipt Date: 20111128
  Transmission Date: 20120403
  Serious: Yes (Other)
  Sender: FDA-Public Use
  Company Number: US-VERTEX PHARMACEUTICALS INC.-AE-2011-002877

PATIENT
  Sex: Male
  Weight: 89.892 kg

DRUGS (6)
  1. RIBAVIRIN [Concomitant]
     Indication: HEPATITIS C
     Route: 048
     Dates: start: 20110911
  2. ASPIRIN [Concomitant]
     Indication: HEADACHE
     Route: 046
  3. ZOFRAN [Concomitant]
  4. PEGASYS [Concomitant]
     Indication: HEPATITIS C
     Route: 058
     Dates: start: 20110911
  5. CELEXA [Concomitant]
     Indication: DEPRESSION
     Route: 046
  6. INCIVEK [Suspect]
     Indication: HEPATITIS C
     Route: 048
     Dates: start: 20110911

REACTIONS (5)
  - ANAEMIA [None]
  - STAPHYLOCOCCAL INFECTION [None]
  - FATIGUE [None]
  - PROCTALGIA [None]
  - HAEMORRHOIDAL HAEMORRHAGE [None]
